FAERS Safety Report 4845631-X (Version None)
Quarter: 2005Q4

REPORT INFORMATION
  Report Type: 
  Country: None (occurrence: None)
  Receive Date: 20051205
  Receipt Date: 20051130
  Transmission Date: 20060501
  Serious: Yes (Hospitalization, Other)
  Sender: FDA-Public Use
  Company Number: US-MERCK-0512USA00089

PATIENT
  Age: 74 Year
  Sex: Female
  Weight: 77 kg

DRUGS (6)
  1. VIOXX [Suspect]
     Route: 048
     Dates: start: 20000501, end: 20020301
  2. ASPIRIN [Concomitant]
     Route: 065
  3. ALLEGRA [Concomitant]
     Route: 065
  4. LESCOL [Concomitant]
     Route: 065
  5. BETANOL [Concomitant]
     Route: 065
  6. ESTRATEST [Concomitant]
     Route: 065

REACTIONS (8)
  - APHASIA [None]
  - APRAXIA [None]
  - BLINDNESS [None]
  - CEREBROVASCULAR ACCIDENT [None]
  - DEPRESSION [None]
  - HEADACHE [None]
  - HYPOAESTHESIA [None]
  - LIMB INJURY [None]
